FAERS Safety Report 6402177-5 (Version None)
Quarter: 2009Q4

REPORT INFORMATION
  Report Type: 
  Country: None (occurrence: None)
  Receive Date: 20091015
  Receipt Date: 20091006
  Transmission Date: 20100525
  Serious: Yes (Other)
  Sender: FDA-Public Use
  Company Number: CH-ASTRAZENECA-2009SE19490

PATIENT

DRUGS (9)
  1. SEROQUEL [Suspect]
     Indication: BIPOLAR DISORDER
     Route: 064
     Dates: end: 20080902
  2. METHADONE HYDROCHLORIDE [Suspect]
     Indication: MENTAL DISORDER
     Route: 064
     Dates: start: 20050101
  3. TEMESTA [Suspect]
     Route: 064
  4. COCAINE [Suspect]
     Indication: MENTAL DISORDER
     Route: 064
  5. DEPAKINE CHRONO [Suspect]
     Indication: BIPOLAR DISORDER
     Dosage: 87 MG / 200 MG, 600 MG TWICE A DAY
     Route: 064
     Dates: end: 20080902
  6. DIAMORPHINE [Suspect]
     Indication: MENTAL DISORDER
     Route: 064
     Dates: start: 20040101, end: 20080101
  7. CITALOPRAM HYDROBROMIDE [Suspect]
     Indication: BIPOLAR I DISORDER
     Route: 064
     Dates: end: 20080902
  8. ZYPREXA [Suspect]
     Indication: BIPOLAR DISORDER
     Route: 064
     Dates: end: 20080902
  9. ANTABUSE [Suspect]
     Indication: ALCOHOL USE
     Route: 064
     Dates: end: 20080923

REACTIONS (4)
  - DRUG WITHDRAWAL SYNDROME NEONATAL [None]
  - FOETAL GROWTH RETARDATION [None]
  - MATERNAL DRUGS AFFECTING FOETUS [None]
  - NEONATAL RESPIRATORY DISTRESS SYNDROME [None]
